FAERS Safety Report 10752000 (Version 1)
Quarter: 2015Q1

REPORT INFORMATION
  Report Type: Spontaneous
  Country: FR (occurrence: None)
  Receive Date: 20150128
  Receipt Date: 20150128
  Transmission Date: 20150721
  Serious: Yes (Hospitalization)
  Sender: FDA-Public Use
  Company Number: NSR_01768_2015

PATIENT
  Age: 07 Year

DRUGS (1)
  1. TRAMADOL (TRAMADOL) [Suspect]
     Active Substance: TRAMADOL
     Indication: PRODUCT USED FOR UNKNOWN INDICATION
     Dosage: NOT THE PRESCRIBED AMOUNT

REACTIONS (10)
  - Acute pulmonary oedema [None]
  - Hepatomegaly [None]
  - Cardiogenic shock [None]
  - Respiratory distress [None]
  - Toxicity to various agents [None]
  - Overdose [None]
  - Hypotension [None]
  - Crepitations [None]
  - Epilepsy [None]
  - Tachycardia [None]
